FAERS Safety Report 7261161-2 (Version None)
Quarter: 2011Q1

REPORT INFORMATION
  Report Type: 
  Country: None (occurrence: None)
  Receive Date: 20110130
  Receipt Date: 20100927
  Transmission Date: 20110831
  Serious: No
  Sender: FDA-Public Use
  Company Number: US-ABBOTT-10P-163-0674225-00

PATIENT
  Age: 51 Year
  Sex: Female

DRUGS (3)
  1. ATENOLOL [Concomitant]
     Indication: HYPERTENSION
  2. HUMIRA [Suspect]
     Indication: CROHN'S DISEASE
     Dates: start: 20100802
  3. PENTASA [Concomitant]
     Indication: CROHN'S DISEASE
     Dosage: 250MG 4 TABLETS 4 TIMES PER DAY

REACTIONS (1)
  - CARDIAC FLUTTER [None]
